FAERS Safety Report 8816079 (Version 2)
Quarter: 2012Q4

REPORT INFORMATION
  Report Type: 
  Country: BR (occurrence: BR)
  Receive Date: 20120928
  Receipt Date: 20121109
  Transmission Date: 20130627
  Serious: Yes (Death, Hospitalization)
  Sender: FDA-Public Use
  Company Number: BR-SANOFI-AVENTIS-2012SA069512

PATIENT
  Age: 61 Year
  Sex: Female
  Weight: 71 kg

DRUGS (2)
  1. LANTUS SOLOSTAR [Suspect]
     Indication: TYPE I DIABETES MELLITUS
     Route: 058
     Dates: start: 2007, end: 20120210
  2. SOLOSTAR [Suspect]
     Indication: DEVICE THERAPY
     Dates: start: 2007, end: 20120210

REACTIONS (5)
  - Pulmonary embolism [Fatal]
  - Fatigue [Not Recovered/Not Resolved]
  - Oedema peripheral [Unknown]
  - Hypoglycaemia [Unknown]
  - Loss of consciousness [Unknown]
